FAERS Safety Report 21427489 (Version 1)
Quarter: 2022Q4

REPORT INFORMATION
  Report Type: Spontaneous
  Country: US (occurrence: US)
  Receive Date: 20221008
  Receipt Date: 20221008
  Transmission Date: 20230113
  Serious: Yes (Other)
  Sender: FDA-Public Use
  Company Number: US-PURDUE-USA-2020-0213386

PATIENT
  Sex: Female

DRUGS (6)
  1. DILAUDID [Suspect]
     Active Substance: HYDROMORPHONE HYDROCHLORIDE
     Indication: Back pain
     Dosage: UNK
     Route: 048
  2. DILAUDID [Suspect]
     Active Substance: HYDROMORPHONE HYDROCHLORIDE
     Dosage: 0.5 MG, UNK
     Route: 042
  3. OXYCODONE HYDROCHLORIDE [Suspect]
     Active Substance: OXYCODONE HYDROCHLORIDE
     Indication: Back pain
     Dosage: UNK
     Route: 048
  4. ACETAMINOPHEN\OXYCODONE HYDROCHLORIDE [Suspect]
     Active Substance: ACETAMINOPHEN\OXYCODONE HYDROCHLORIDE
     Indication: Back pain
     Dosage: 1 DF(5MG/325MG), Q6- 8H
     Route: 048
  5. HYDROCODONE BITARTRATE AND ACETAMINOPHEN [Suspect]
     Active Substance: ACETAMINOPHEN\HYDROCODONE BITARTRATE
     Indication: Back pain
     Dosage: 1 DF (5MG /325 MG), Q4- 6H
     Route: 048
  6. OXYCODONE HYDROCHLORIDE [Suspect]
     Active Substance: OXYCODONE HYDROCHLORIDE
     Indication: Back pain
     Dosage: UNK
     Route: 065

REACTIONS (1)
  - Drug dependence [Unknown]
